FAERS Safety Report 9581358 (Version 2)
Quarter: 2013Q4

REPORT INFORMATION
  Report Type: Spontaneous
  Country: IE (occurrence: IE)
  Receive Date: 20131002
  Receipt Date: 20131002
  Transmission Date: 20140711
  Serious: Yes (Hospitalization, Other)
  Sender: FDA-Public Use
  Company Number: IE-GLAXOSMITHKLINE-B0687128A

PATIENT
  Age: 45 Year
  Sex: Female

DRUGS (4)
  1. LAMICTAL [Suspect]
     Indication: CONVULSION
     Dosage: 50MG PER DAY
     Route: 065
     Dates: start: 201011, end: 20101119
  2. FLORINEF [Concomitant]
     Indication: ADRENAL INSUFFICIENCY
     Dosage: .2MCG PER DAY
  3. MIDODRINE [Concomitant]
     Indication: ORTHOSTATIC HYPOTENSION
     Dosage: 5MG THREE TIMES PER DAY
  4. SPASMONAL [Concomitant]
     Indication: IRRITABLE BOWEL SYNDROME
     Dosage: 1U THREE TIMES PER DAY

REACTIONS (16)
  - Amylase increased [Recovering/Resolving]
  - Hepatitis [Recovering/Resolving]
  - Meningitis [Recovering/Resolving]
  - Pancreatitis [Recovering/Resolving]
  - Transaminases increased [Unknown]
  - Drug reaction with eosinophilia and systemic symptoms [Unknown]
  - Rash [Recovering/Resolving]
  - Pyrexia [Unknown]
  - Influenza like illness [Unknown]
  - Conjunctivitis [Recovering/Resolving]
  - Nausea [Unknown]
  - Abdominal pain [Unknown]
  - Body temperature increased [Recovering/Resolving]
  - Headache [Recovering/Resolving]
  - Face oedema [Recovering/Resolving]
  - Lymphadenopathy [Recovering/Resolving]
